FAERS Safety Report 6605247-1 (Version None)
Quarter: 2010Q1

REPORT INFORMATION
  Report Type: 
  Country: None (occurrence: None)
  Receive Date: 20100226
  Receipt Date: 20091116
  Transmission Date: 20100710
  Serious: Yes (Life-Threatening, Other)
  Sender: FDA-Public Use
  Company Number: US-BAYER-200827659NA

PATIENT
  Age: 63 Year
  Sex: Male
  Weight: 69 kg

DRUGS (32)
  1. MAGNEVIST [Suspect]
     Indication: NUCLEAR MAGNETIC RESONANCE IMAGING
     Dates: start: 20041129, end: 20041129
  2. MAGNEVIST [Suspect]
     Dates: start: 20060310, end: 20060310
  3. MAGNEVIST [Suspect]
     Dates: start: 20060315, end: 20060315
  4. MAGNEVIST [Suspect]
     Dates: start: 20060730, end: 20060730
  5. OMNISCAN [Suspect]
     Indication: ANGIOGRAM
     Dosage: AS USED: 40 ML
     Route: 042
     Dates: start: 20040428, end: 20040428
  6. OMNISCAN [Suspect]
     Dosage: AS USED: 40 ML
     Route: 042
     Dates: start: 20060610, end: 20060610
  7. OMNISCAN [Suspect]
     Dosage: AS USED: 50 ML
     Route: 042
     Dates: start: 20060617, end: 20060617
  8. NEUPOGEN [Concomitant]
  9. COUMADIN [Concomitant]
  10. LANTUS [Concomitant]
  11. INSULIN NOVOLOG [Concomitant]
  12. PREDNISONE [Concomitant]
  13. RAPAMUNE [Concomitant]
  14. PROGRAF [Concomitant]
  15. TOPROL-XL [Concomitant]
  16. TRICOR [Concomitant]
  17. LASIX [Concomitant]
  18. PLAVIX [Concomitant]
  19. ZOCOR [Concomitant]
  20. EPOGEN [Concomitant]
     Dosage: DOSE: 40,000 UNITS TIW (MWF)
     Route: 058
     Dates: start: 20060415
  21. EPOGEN [Concomitant]
     Dosage: DOSE: 20,000 UNITS 3XWEEKLY; DOSE INCREASED DEC-2005
  22. FERRLECIT [Concomitant]
  23. IRON COMPLEX [Concomitant]
  24. NIFEREX [Concomitant]
  25. IMURAN [Concomitant]
     Dates: start: 19900201, end: 20031201
  26. CYCLOSPORINE [Concomitant]
     Indication: IMMUNOSUPPRESSION
     Dates: start: 19900201, end: 20051201
  27. ACYCLOVIR [Concomitant]
  28. MUCOMYST [Concomitant]
     Dosage: TOTAL DAILY DOSE: 1200 MG
     Route: 048
     Dates: start: 20060312
  29. MUCOMYST [Concomitant]
     Dosage: TOTAL DAILY DOSE: 1200 MG
     Route: 048
     Dates: start: 20060315
  30. COLCHICINE [Concomitant]
  31. DIGOXIN [Concomitant]
  32. ATORVASTATIN CALCIUM [Concomitant]

REACTIONS (24)
  - ANXIETY [None]
  - ARTHRALGIA [None]
  - ARTHROPATHY [None]
  - CARDIOVASCULAR DISORDER [None]
  - HYPOAESTHESIA [None]
  - IRIS DISORDER [None]
  - JOINT CONTRACTURE [None]
  - JOINT LOCK [None]
  - JOINT RANGE OF MOTION DECREASED [None]
  - MUSCULOSKELETAL STIFFNESS [None]
  - NEPHROGENIC SYSTEMIC FIBROSIS [None]
  - OEDEMA PERIPHERAL [None]
  - PAIN [None]
  - PENILE OEDEMA [None]
  - SCROTAL OEDEMA [None]
  - SENSORY LOSS [None]
  - SKIN DISCOLOURATION [None]
  - SKIN EXFOLIATION [None]
  - SKIN FIBROSIS [None]
  - SKIN HYPERTROPHY [None]
  - SKIN INDURATION [None]
  - SKIN TIGHTNESS [None]
  - SWELLING [None]
  - TOE AMPUTATION [None]
